FAERS Safety Report 14663865 (Version 2)
Quarter: 2018Q3

REPORT INFORMATION
  Report Type: Spontaneous
  Country: US (occurrence: US)
  Receive Date: 20180321
  Receipt Date: 20180702
  Transmission Date: 20181010
  Serious: No
  Sender: FDA-Public Use
  Company Number: US-JAZZ-2018-US-004449

PATIENT
  Age: 45 Year
  Sex: Female

DRUGS (3)
  1. CLONIDINE. [Suspect]
     Active Substance: CLONIDINE
     Indication: SPINAL PAIN
     Dosage: 0.46 ?G, QH
     Route: 037
  2. DILAUDID [Suspect]
     Active Substance: HYDROMORPHONE HYDROCHLORIDE
     Indication: SPINAL PAIN
     Dosage: 0.092 MG, QH
     Route: 037
  3. PRIALT [Suspect]
     Active Substance: ZICONOTIDE ACETATE
     Indication: SPINAL PAIN
     Dosage: 0.014 ?G, QH
     Route: 037
     Dates: start: 20180228

REACTIONS (7)
  - Arthritis [Unknown]
  - Fibromyalgia [Unknown]
  - Device issue [Unknown]
  - Scoliosis [Unknown]
  - Pain [Not Recovered/Not Resolved]
  - Limb injury [Unknown]
  - Pre-existing condition improved [Unknown]

NARRATIVE: CASE EVENT DATE: 201802
